FAERS Safety Report 5005037-X (Version None)
Quarter: 2006Q2

REPORT INFORMATION
  Report Type: 
  Country: None (occurrence: None)
  Receive Date: 20060516
  Receipt Date: 20060516
  Transmission Date: 20061013
  Serious: Yes (Death)
  Sender: FDA-Public Use
  Company Number: None

PATIENT
  Age: 79 Year
  Sex: Male
  Weight: 57.6068 kg

DRUGS (9)
  1. OXANDROLONE [Suspect]
     Indication: LUNG NEOPLASM MALIGNANT
     Dosage: 10MG/ BID
  2. OXANDROLONE [Suspect]
     Indication: WEIGHT DECREASED
     Dosage: 10MG/ BID
  3. DOCETAXOL [Concomitant]
  4. BORTEZOMIB [Concomitant]
  5. ACTOS [Concomitant]
  6. NORVASC [Concomitant]
  7. DETROL [Concomitant]
  8. XANAX [Concomitant]
  9. PROTONIX [Concomitant]

REACTIONS (19)
  - ANOREXIA [None]
  - ASTHENIA [None]
  - BLOOD GASES ABNORMAL [None]
  - BREATH SOUNDS ABNORMAL [None]
  - CREPITATIONS [None]
  - DYSPNOEA [None]
  - HEART RATE INCREASED [None]
  - INFECTION [None]
  - MALAISE [None]
  - ORAL INTAKE REDUCED [None]
  - OXYGEN SATURATION DECREASED [None]
  - PLEURAL EFFUSION [None]
  - PNEUMONIA [None]
  - PRODUCTIVE COUGH [None]
  - PYREXIA [None]
  - RESPIRATORY RATE INCREASED [None]
  - SPUTUM DISCOLOURED [None]
  - SYNCOPE [None]
  - WHITE BLOOD CELL COUNT INCREASED [None]
